FAERS Safety Report 10177704 (Version 1)
Quarter: 2014Q2

REPORT INFORMATION
  Report Type: Spontaneous
  Country: US (occurrence: US)
  Receive Date: 20140516
  Receipt Date: 20140516
  Transmission Date: 20141212
  Serious: No
  Sender: FDA-Public Use
  Company Number: US-SA-2014SA025384

PATIENT
  Age: 50 Year
  Sex: Male

DRUGS (1)
  1. APIDRA [Suspect]
     Dosage: TAKEN AT THE TIME OF MEAL
     Route: 058

REACTIONS (1)
  - Palpitations [Unknown]
